FAERS Safety Report 4767662-0 (Version None)
Quarter: 2005Q3

REPORT INFORMATION
  Report Type: 
  Country: None (occurrence: None)
  Receive Date: 20050912
  Receipt Date: 20050830
  Transmission Date: 20060218
  Serious: Yes (Hospitalization)
  Sender: FDA-Public Use
  Company Number: 2005052354

PATIENT
  Age: 82 Year
  Sex: Female

DRUGS (8)
  1. AMLODIPINE [Suspect]
     Indication: ILL-DEFINED DISORDER
     Dosage: (5 MG,), ORAL
     Route: 048
  2. FENOFIBRATE [Suspect]
     Indication: ILL-DEFINED DISORDER
     Dosage: 160 MG (DAILY), ORAL
     Route: 048
  3. NIMESULIDE (NIMESULIDE) [Suspect]
     Indication: ILL-DEFINED DISORDER
     Dosage: 8 MG (DAILY), ORAL
     Route: 048
     Dates: end: 20050221
  4. PANTOPRAZOLE SODIUM [Suspect]
     Indication: ILL-DEFINED DISORDER
     Dosage: 20 MG (DAILY), ORAL
     Route: 048
  5. NOCTRAN (ACEPROMAZINE, ACEPROMETAZINE, CLORAZEPATE DIPOTASSIUM) [Suspect]
     Indication: ILL-DEFINED DISORDER
     Dosage: 10 MG (DAILY), ORAL
     Route: 048
     Dates: end: 20050215
  6. ATACAND [Suspect]
     Indication: ILL-DEFINED DISORDER
     Dosage: 8 MG (DAILY), ORAL
     Route: 048
     Dates: end: 20050221
  7. COLCHICINE/OPIUM/- TIEMONIUM (COLCHICINE, OPIUM, TIEMONIUM METHYLSULPH [Concomitant]
  8. CORTICOSTEROIDS (CORTICOSTEROIDS) [Concomitant]

REACTIONS (16)
  - ANAEMIA [None]
  - ANTIBODY TEST POSITIVE [None]
  - ARTHRALGIA [None]
  - BETA 2 MICROGLOBULIN INCREASED [None]
  - C-REACTIVE PROTEIN INCREASED [None]
  - DNA ANTIBODY POSITIVE [None]
  - FEELING HOT [None]
  - HYPERPROTEINAEMIA [None]
  - HYPOGAMMAGLOBULINAEMIA [None]
  - INFLAMMATION [None]
  - PAIN IN EXTREMITY [None]
  - PYREXIA [None]
  - RED BLOOD CELL SEDIMENTATION RATE INCREASED [None]
  - RHEUMATOID FACTOR POSITIVE [None]
  - SYSTEMIC LUPUS ERYTHEMATOSUS [None]
  - WEIGHT DECREASED [None]
